FAERS Safety Report 6346212-1 (Version None)
Quarter: 2009Q3

REPORT INFORMATION
  Report Type: 
  Country: None (occurrence: None)
  Receive Date: 20090909
  Receipt Date: 20090903
  Transmission Date: 20100115
  Serious: Yes (Death, Other)
  Sender: FDA-Public Use
  Company Number: US-CELGENEUS-163-21880-09090297

PATIENT
  Sex: Female

DRUGS (1)
  1. REVLIMID [Suspect]
     Route: 048
     Dates: start: 20090301, end: 20090601

REACTIONS (4)
  - DEATH [None]
  - DRUG INEFFECTIVE [None]
  - LEUKAEMIA [None]
  - PNEUMONIA [None]
